FAERS Safety Report 7380012-9 (Version None)
Quarter: 2011Q1

REPORT INFORMATION
  Report Type: 
  Country: None (occurrence: None)
  Receive Date: 20110329
  Receipt Date: 20110315
  Transmission Date: 20110831
  Serious: Yes (Hospitalization, Other)
  Sender: FDA-Public Use
  Company Number: US-JNJFOC-20101207701

PATIENT
  Sex: Female
  Weight: 81.65 kg

DRUGS (18)
  1. PREDNISONE [Concomitant]
     Indication: RHEUMATOID ARTHRITIS
     Route: 048
  2. HUMALOG [Concomitant]
     Indication: TYPE 2 DIABETES MELLITUS
     Dosage: 4 UNITS 3 TIMES A DAY WITH MEALS AND SLIDING SCALE
     Route: 058
  3. LEVEMIR [Concomitant]
  4. VITAMIN D [Concomitant]
  5. XANAX [Concomitant]
  6. LYRICA [Concomitant]
  7. ASPIRIN [Concomitant]
  8. DIOVAN [Concomitant]
  9. LIVALO [Concomitant]
  10. ACT 3 [Concomitant]
  11. REMICADE [Suspect]
     Indication: RHEUMATOID ARTHRITIS
     Route: 042
  12. REMICADE [Suspect]
     Dosage: THIRD INFUSION
     Route: 042
  13. LANTUS [Concomitant]
     Indication: TYPE 2 DIABETES MELLITUS
     Dosage: 24 UNITS AT BEDTIME
     Route: 058
  14. TEKTURNA [Concomitant]
  15. REMICADE [Suspect]
     Route: 042
  16. REMICADE [Suspect]
     Route: 042
  17. BYSTOLIC [Concomitant]
  18. ALL OTHER THERAPEUTIC PRODUCTS [Concomitant]

REACTIONS (6)
  - RESTRICTIVE PULMONARY DISEASE [None]
  - INFUSION RELATED REACTION [None]
  - HYPERTENSION [None]
  - PHARYNGEAL DISORDER [None]
  - PRURITUS [None]
  - DYSPNOEA [None]
